FAERS Safety Report 6260800-2 (Version None)
Quarter: 2009Q3

REPORT INFORMATION
  Report Type: 
  Country: None (occurrence: None)
  Receive Date: 20090706
  Receipt Date: 20090623
  Transmission Date: 20100115
  Serious: Yes (Hospitalization)
  Sender: FDA-Public Use
  Company Number: 8048126

PATIENT
  Age: 48 Year
  Sex: Female
  Weight: 64.5 kg

DRUGS (14)
  1. CIMZIA [Suspect]
     Indication: CROHN'S DISEASE
     Dates: start: 20090501
  2. PREDNISONE TAB [Concomitant]
  3. OXYCONTIN [Concomitant]
  4. CYMBALTA [Concomitant]
  5. NYSTATIN [Concomitant]
  6. FLINTSTONES [Concomitant]
  7. CALCIUM W/VITAMIN D [Concomitant]
  8. FERROUS SULFATE TAB [Concomitant]
  9. ASCORBIC ACID [Concomitant]
  10. PRILOSEC [Concomitant]
  11. LIDODERM [Concomitant]
  12. DIFLUCAN [Concomitant]
  13. REFRESH [Concomitant]
  14. MIRAPEX [Concomitant]

REACTIONS (3)
  - INJECTION SITE HAEMATOMA [None]
  - OEDEMA PERIPHERAL [None]
  - PERFORATED ULCER [None]
